FAERS Safety Report 7050988-8 (Version None)
Quarter: 2010Q4

REPORT INFORMATION
  Report Type: 
  Country: None (occurrence: None)
  Receive Date: 20101019
  Receipt Date: 20101007
  Transmission Date: 20110411
  Serious: Yes (Hospitalization)
  Sender: FDA-Public Use
  Company Number: FR-RB-016585-10

PATIENT
  Age: 45 Year
  Sex: Female

DRUGS (1)
  1. SUBUTEX [Suspect]
     Indication: PRODUCT USED FOR UNKNOWN INDICATION
     Dosage: ADMINISTERED FOR SEVERAL YEARS IN LEFT INTRAFEMORAL EXCLUSIVELY.
     Route: 013

REACTIONS (8)
  - ANEURYSM [None]
  - DEEP VEIN THROMBOSIS [None]
  - EMBOLISM ARTERIAL [None]
  - HAEMATOMA [None]
  - INFECTION [None]
  - INTENTIONAL DRUG MISUSE [None]
  - PAIN IN EXTREMITY [None]
  - PYREXIA [None]
